FAERS Safety Report 9684214 (Version 1)
Quarter: 2013Q4

REPORT INFORMATION
  Report Type: Spontaneous
  Country: US (occurrence: None)
  Receive Date: 20131111
  Receipt Date: 20131111
  Transmission Date: 20140711
  Serious: Yes (Disabling)
  Sender: FDA-Public Use
  Company Number: None

PATIENT
  Age: 36 Year
  Sex: Male
  Weight: 95.26 kg

DRUGS (1)
  1. ACCUTANE [Suspect]
     Indication: ACNE
     Dosage: A FEW MONTH IN LATE 1993 - EARLY

REACTIONS (4)
  - Rectal haemorrhage [None]
  - Diarrhoea [None]
  - Mucous stools [None]
  - Colitis ulcerative [None]
